FAERS Safety Report 11650500 (Version 1)
Quarter: 2015Q4

REPORT INFORMATION
  Report Type: Spontaneous
  Country: US (occurrence: US)
  Receive Date: 20151021
  Receipt Date: 20151021
  Transmission Date: 20160304
  Serious: No
  Sender: FDA-Public Use
  Company Number: US-WATSON-2015-03673

PATIENT

DRUGS (1)
  1. GUANFACINE (WATSON LABORATORIES) [Suspect]
     Active Substance: GUANFACINE
     Indication: PRODUCT USED FOR UNKNOWN INDICATION
     Route: 065

REACTIONS (3)
  - Obsessive-compulsive disorder [Unknown]
  - Headache [Unknown]
  - Anxiety [Unknown]
